FAERS Safety Report 19490058 (Version 1)
Quarter: 2021Q3

REPORT INFORMATION
  Report Type: Report from Study
  Country: None (occurrence: US)
  Receive Date: 20210705
  Receipt Date: 20210705
  Transmission Date: 20211014
  Serious: Yes (Hospitalization)
  Sender: FDA-Public Use
  Company Number: US-ABBVIE-21K-163-3971607-00

PATIENT
  Age: 50 Year
  Sex: Female

DRUGS (7)
  1. HUMIRA [Suspect]
     Active Substance: ADALIMUMAB
     Dosage: CF
     Route: 058
     Dates: start: 202012
  2. HUMIRA [Suspect]
     Active Substance: ADALIMUMAB
     Indication: HIDRADENITIS
     Dosage: CF
     Route: 058
     Dates: start: 2015, end: 201512
  3. HUMIRA [Suspect]
     Active Substance: ADALIMUMAB
     Indication: HIDRADENITIS
     Dosage: CF?DAY 1
     Route: 058
  4. PFIZER?BIONTECH COVID?19 VACCINE [Concomitant]
     Active Substance: TOZINAMERAN
     Indication: COVID-19 IMMUNISATION
     Dosage: PFIZER
     Route: 030
     Dates: start: 20210415, end: 20210415
  5. HUMIRA [Suspect]
     Active Substance: ADALIMUMAB
     Dosage: CF
     Route: 058
     Dates: start: 201601, end: 2016
  6. PFIZER?BIONTECH COVID?19 VACCINE [Concomitant]
     Active Substance: TOZINAMERAN
     Dosage: PFIZER
     Route: 030
     Dates: start: 20210506, end: 20210506
  7. HUMIRA [Suspect]
     Active Substance: ADALIMUMAB
     Dosage: CF?DAY 15
     Route: 058

REACTIONS (13)
  - Red man syndrome [Recovered/Resolved]
  - Gingival bleeding [Not Recovered/Not Resolved]
  - Subcutaneous abscess [Recovered/Resolved]
  - Blood glucose increased [Recovered/Resolved]
  - Sepsis [Recovered/Resolved]
  - Chest pain [Recovering/Resolving]
  - Toothache [Not Recovered/Not Resolved]
  - Hallucination, visual [Recovered/Resolved]
  - Nasopharyngitis [Recovered/Resolved]
  - Dental caries [Not Recovered/Not Resolved]
  - Blood magnesium decreased [Unknown]
  - Gingival recession [Not Recovered/Not Resolved]
  - Fungal skin infection [Not Recovered/Not Resolved]

NARRATIVE: CASE EVENT DATE: 201512
